FAERS Safety Report 7487536-4 (Version None)
Quarter: 2011Q1

REPORT INFORMATION
  Report Type: 
  Country: None (occurrence: None)
  Receive Date: 20110309
  Receipt Date: 20101020
  Transmission Date: 20110831
  Serious: No
  Sender: FDA-Public Use
  Company Number: 2010SP056159

PATIENT
  Age: 49 Year
  Sex: Female

DRUGS (11)
  1. CLONAZEPAM [Concomitant]
  2. PHENTERMINE [Concomitant]
  3. GEODON [Concomitant]
  4. SAPHRIS [Suspect]
     Indication: BIPOLAR DISORDER
     Dosage: 10 MG; ONCE; SL
     Route: 060
     Dates: start: 20101012, end: 20101012
  5. SAPHRIS [Suspect]
     Indication: AGITATION
     Dosage: 10 MG; ONCE; SL
     Route: 060
     Dates: start: 20101012, end: 20101012
  6. SONATA [Concomitant]
  7. TRAZODONE HCL [Concomitant]
  8. BUPROPION HCL [Concomitant]
  9. LAMOTRIGINE [Concomitant]
  10. TOPAMAX [Concomitant]
  11. PAROXETINE [Concomitant]

REACTIONS (3)
  - ORAL DISCOMFORT [None]
  - PAIN [None]
  - STOMATITIS [None]
